FAERS Safety Report 16016278 (Version 1)
Quarter: 2019Q1

REPORT INFORMATION
  Report Type: Spontaneous
  Country: US (occurrence: US)
  Receive Date: 20190227
  Receipt Date: 20190227
  Transmission Date: 20190418
  Serious: Yes (Hospitalization, Disabling)
  Sender: FDA-Public Use
  Company Number: None

PATIENT
  Age: 77 Year
  Sex: Male

DRUGS (1)
  1. NINLARO [Suspect]
     Active Substance: IXAZOMIB CITRATE
     Indication: PLASMA CELL MYELOMA IN REMISSION
     Dosage: ?          OTHER FREQUENCY:DAYS 1-8 AND 15-28;?
     Route: 048

REACTIONS (4)
  - Dysphonia [None]
  - Influenza like illness [None]
  - Diarrhoea [None]
  - Hiccups [None]

NARRATIVE: CASE EVENT DATE: 20190221
